FAERS Safety Report 7732271-8 (Version None)
Quarter: 2011Q3

REPORT INFORMATION
  Report Type: 
  Country: None (occurrence: None)
  Receive Date: 20110906
  Receipt Date: 20110823
  Transmission Date: 20111222
  Serious: No
  Sender: FDA-Public Use
  Company Number: US-AMGEN-USASP2011043283

PATIENT
  Sex: Female
  Weight: 50.8 kg

DRUGS (6)
  1. MULTIVITAMIN                       /00097801/ [Concomitant]
  2. STRONTIUM [Concomitant]
  3. CALCIUM CARBONATE [Concomitant]
  4. VITAMIN D [Concomitant]
  5. ASPIRIN [Concomitant]
  6. PROLIA [Suspect]
     Indication: OSTEOPOROSIS POSTMENOPAUSAL
     Dosage: 60 MG, Q6MO
     Dates: start: 20110321

REACTIONS (5)
  - SKIN BURNING SENSATION [None]
  - CONSTIPATION [None]
  - BLOOD POTASSIUM DECREASED [None]
  - OROPHARYNGEAL PAIN [None]
  - OEDEMA PERIPHERAL [None]
